FAERS Safety Report 5612197-6 (Version None)
Quarter: 2008Q1

REPORT INFORMATION
  Report Type: 
  Country: None (occurrence: None)
  Receive Date: 20080204
  Receipt Date: 20080121
  Transmission Date: 20080703
  Serious: Yes (Other)
  Sender: FDA-Public Use
  Company Number: FR-AMGEN-UK261827

PATIENT
  Age: 52 Year
  Sex: Male

DRUGS (1)
  1. ARANESP [Suspect]
     Indication: RENAL TRANSPLANT
     Route: 058
     Dates: end: 20071201

REACTIONS (3)
  - HYPERTENSION [None]
  - MACROCYTOSIS [None]
  - POLYCYTHAEMIA [None]
